FAERS Safety Report 8453822-4 (Version None)
Quarter: 2012Q2

REPORT INFORMATION
  Report Type: 
  Country: None (occurrence: None)
  Receive Date: 20120620
  Receipt Date: 20120611
  Transmission Date: 20120825
  Serious: Yes (Hospitalization, Other)
  Sender: FDA-Public Use
  Company Number: JP-VERTEX PHARMACEUTICALS INC.-AE-2012-006055

PATIENT
  Age: 54 Year
  Sex: Female

DRUGS (7)
  1. PEGINTERFERON ALFA-2B [Concomitant]
     Indication: HEPATITIS C
     Route: 058
     Dates: start: 20120306
  2. MUCOSTA [Concomitant]
     Route: 048
     Dates: start: 20120308
  3. LANSOPRAZOLE [Concomitant]
     Route: 048
     Dates: start: 20120310
  4. TELAVIC (TELAPREVIR) [Suspect]
     Route: 048
     Dates: start: 20120311, end: 20120527
  5. LOXOPROFEN [Concomitant]
     Route: 048
     Dates: start: 20120306
  6. TELAVIC (TELAPREVIR) [Suspect]
     Indication: HEPATITIS C
     Route: 048
     Dates: start: 20120306, end: 20120310
  7. RIBAVIRIN [Concomitant]
     Indication: HEPATITIS C
     Route: 048
     Dates: start: 20120306

REACTIONS (2)
  - VOMITING [None]
  - WHITE BLOOD CELL COUNT DECREASED [None]
